FAERS Safety Report 4510919-9 (Version None)
Quarter: 2004Q4

REPORT INFORMATION
  Report Type: 
  Country: None (occurrence: None)
  Receive Date: 20041124
  Receipt Date: 20041119
  Transmission Date: 20050328
  Serious: Yes (Hospitalization)
  Sender: FDA-Public Use
  Company Number: US-MERCK-0411USA03404

PATIENT
  Age: 43 Year
  Sex: Male

DRUGS (4)
  1. VIOXX [Suspect]
     Indication: INFLAMMATION LOCALISED
     Route: 048
     Dates: start: 20010301, end: 20020501
  2. VIOXX [Suspect]
     Route: 048
     Dates: start: 20020501, end: 20021201
  3. VIOXX [Suspect]
     Indication: KNEE OPERATION
     Route: 048
     Dates: start: 20010301, end: 20020501
  4. VIOXX [Suspect]
     Route: 048
     Dates: start: 20020501, end: 20021201

REACTIONS (2)
  - ARTHROPATHY [None]
  - MYOCARDIAL INFARCTION [None]
